FAERS Safety Report 10234411 (Version 1)
Quarter: 2014Q2

REPORT INFORMATION
  Report Type: Spontaneous
  Country: AU (occurrence: AU)
  Receive Date: 20140612
  Receipt Date: 20140612
  Transmission Date: 20141212
  Serious: Yes (Other)
  Sender: FDA-Public Use
  Company Number: AU-BRISTOL-MYERS SQUIBB COMPANY-20962684

PATIENT
  Sex: 0

DRUGS (1)
  1. FORXIGA [Suspect]

REACTIONS (1)
  - Lactic acidosis [Unknown]
